FAERS Safety Report 6983438-8 (Version None)
Quarter: 2010Q3

REPORT INFORMATION
  Report Type: 
  Country: None (occurrence: None)
  Receive Date: 20100914
  Receipt Date: 20100914
  Transmission Date: 20110219
  Serious: Yes (Other)
  Sender: FDA-Public Use
  Company Number: None

PATIENT
  Age: 36 Year
  Sex: Female

DRUGS (1)
  1. ATRIPLA [Suspect]
     Indication: HIV INFECTION
     Dosage: 600MG PO DAILY
     Route: 048
     Dates: start: 20100825, end: 20100908

REACTIONS (2)
  - PRURITUS [None]
  - RASH GENERALISED [None]
